FAERS Safety Report 6785019-8 (Version None)
Quarter: 2010Q2

REPORT INFORMATION
  Report Type: 
  Country: None (occurrence: None)
  Receive Date: 20100618
  Receipt Date: 20100611
  Transmission Date: 20101027
  Serious: Yes (Death, Other)
  Sender: FDA-Public Use
  Company Number: 2010JP003426

PATIENT
  Age: 38 Year
  Sex: Female

DRUGS (7)
  1. TACROLIMUS [Suspect]
     Indication: STEM CELL TRANSPLANT
  2. CORTICOSTEROIDS (CORTICOSTERODIS) FORMULATION UKNOWN [Suspect]
     Indication: STEM CELL TRANSPLANT
  3. IDARUBICIN HCL [Concomitant]
  4. CYTARABINE [Concomitant]
  5. CYCLOPHOSPHAMIDE [Concomitant]
  6. GANCICLOVIR [Concomitant]
  7. AMSACRINE (AMSACRINE) [Concomitant]

REACTIONS (2)
  - CYTOMEGALOVIRUS INFECTION [None]
  - SEPTIC SHOCK [None]
